FAERS Safety Report 24940851 (Version 2)
Quarter: 2025Q2

REPORT INFORMATION
  Report Type: Spontaneous
  Country: CA (occurrence: CA)
  Receive Date: 20250207
  Receipt Date: 20250408
  Transmission Date: 20250717
  Serious: Yes (Other)
  Sender: AMGEN
  Company Number: CA-PFIZER INC-202500023886

PATIENT
  Age: 82 Year
  Sex: Female

DRUGS (2)
  1. ENBREL [Suspect]
     Active Substance: ETANERCEPT
     Indication: Rheumatoid arthritis
     Route: 065
  2. METHOTREXATE [Concomitant]
     Active Substance: METHOTREXATE
     Indication: Rheumatoid arthritis
     Dosage: 20 MG, WEEKLY (8 CO PER WEEK)
     Route: 065
     Dates: start: 2007

REACTIONS (7)
  - Arrhythmia [Unknown]
  - Cerebrovascular accident [Unknown]
  - Condition aggravated [Unknown]
  - Drug ineffective [Unknown]
  - Anxiety [Unknown]
  - Labyrinthitis [Unknown]
  - Fall [Unknown]

NARRATIVE: CASE EVENT DATE: 20240901
